FAERS Safety Report 8053827-1 (Version None)
Quarter: 2012Q1

REPORT INFORMATION
  Report Type: 
  Country: None (occurrence: None)
  Receive Date: 20120110
  Receipt Date: 20120105
  Transmission Date: 20120608
  Serious: Yes (Hospitalization, Other)
  Sender: FDA-Public Use
  Company Number: 1000026580

PATIENT
  Age: 23 Year
  Sex: Female

DRUGS (3)
  1. OLANZAPINE (OLANZAPINE) (TABLETS) (OLANZAPINE) [Concomitant]
  2. ESCITALOPRAM OXALATE [Suspect]
     Dosage: 20 MG (20 MG,1 IN 1 D),ORAL
     Route: 048
  3. OXCARBAZEPINE (OXCARBAZEPINE) (TABLETS) (OXCARBAMEIPINE) [Concomitant]

REACTIONS (16)
  - SUICIDE ATTEMPT [None]
  - LOSS OF CONSCIOUSNESS [None]
  - DYSARTHRIA [None]
  - MUSCULAR WEAKNESS [None]
  - HYPOREFLEXIA [None]
  - DEPRESSION [None]
  - TONGUE BITING [None]
  - SYNCOPE [None]
  - EPILEPSY [None]
  - AFFECTIVE DISORDER [None]
  - DYSKINESIA [None]
  - TARDIVE DYSKINESIA [None]
  - DELUSION OF REFERENCE [None]
  - REGRESSIVE BEHAVIOUR [None]
  - SCHIZOPHRENIFORM DISORDER [None]
  - NEURODEGENERATIVE DISORDER [None]
